FAERS Safety Report 10949046 (Version 1)
Quarter: 2015Q1

REPORT INFORMATION
  Report Type: Spontaneous
  Country: US (occurrence: None)
  Receive Date: 20150323
  Receipt Date: 20150323
  Transmission Date: 20150721
  Serious: No
  Sender: FDA-Public Use
  Company Number: None

PATIENT
  Age: 39 Year
  Sex: Female

DRUGS (8)
  1. DDAVP [Concomitant]
     Active Substance: DESMOPRESSIN ACETATE
  2. EXTAVIA [Concomitant]
     Active Substance: INTERFERON BETA-1B
  3. ADVIL [Concomitant]
     Active Substance: IBUPROFEN
  4. VITAMIN C [Concomitant]
     Active Substance: ASCORBIC ACID
  5. DESMOPRESSION [Concomitant]
  6. LEXAPOR [Concomitant]
  7. AFINITOR [Suspect]
     Active Substance: EVEROLIMUS
     Indication: BREAST CANCER FEMALE
     Route: 048
     Dates: start: 20140731, end: 201503
  8. EXEMESTATINE [Concomitant]

REACTIONS (2)
  - Therapy cessation [None]
  - Drug ineffective [None]
